FAERS Safety Report 9857192 (Version 1)
Quarter: 2014Q1

REPORT INFORMATION
  Report Type: Report from Study
  Country: FR (occurrence: FR)
  Receive Date: 20140130
  Receipt Date: 20140130
  Transmission Date: 20141002
  Serious: Yes (Hospitalization)
  Sender: FDA-Public Use
  Company Number: FR-CELGENEUS-056-21880-14013610

PATIENT
  Age: 71 Year
  Sex: Male
  Weight: 70 kg

DRUGS (2)
  1. REVLIMID [Suspect]
     Indication: LYMPHOMA
     Dosage: 20 MILLIGRAM
     Route: 048
     Dates: start: 20130826, end: 20140112
  2. RITUXIMAB [Concomitant]
     Indication: LYMPHOMA
     Route: 065
     Dates: start: 20130826, end: 20131230

REACTIONS (1)
  - Cardiovascular disorder [Not Recovered/Not Resolved]
